FAERS Safety Report 18029176 (Version 1)
Quarter: 2020Q3

REPORT INFORMATION
  Report Type: Other
  Country: JP (occurrence: JP)
  Receive Date: 20200716
  Receipt Date: 20200716
  Transmission Date: 20201103
  Serious: Yes (Hospitalization, Other)
  Sender: FDA-Public Use
  Company Number: JP-ROCHE-2487166

PATIENT
  Age: 16 Year
  Sex: Female

DRUGS (2)
  1. ENTRECTINIB [Suspect]
     Active Substance: ENTRECTINIB
     Route: 048
     Dates: start: 2019
  2. ENTRECTINIB [Suspect]
     Active Substance: ENTRECTINIB
     Indication: BRAIN NEOPLASM
     Route: 048
     Dates: start: 2019, end: 2019

REACTIONS (4)
  - Disease progression [Unknown]
  - Somnolence [Unknown]
  - Fatigue [Recovering/Resolving]
  - Malaise [Recovering/Resolving]

NARRATIVE: CASE EVENT DATE: 2019
